FAERS Safety Report 7261971-1 (Version None)
Quarter: 2011Q1

REPORT INFORMATION
  Report Type: 
  Country: None (occurrence: None)
  Receive Date: 20110130
  Receipt Date: 20101213
  Transmission Date: 20110831
  Serious: No
  Sender: FDA-Public Use
  Company Number: US-ABBOTT-10P-163-0691189-00

PATIENT
  Age: 17 Year
  Sex: Female

DRUGS (8)
  1. BETHANECHOL [Concomitant]
     Indication: GASTROINTESTINAL MOTILITY DISORDER
     Route: 048
  2. PREVACID [Concomitant]
     Indication: ABDOMINAL DISCOMFORT
     Route: 048
  3. ULTRAM [Concomitant]
     Indication: PRODUCT USED FOR UNKNOWN INDICATION
     Dosage: EACH NIGHT
     Route: 048
  4. PEPCID [Concomitant]
     Indication: ABDOMINAL DISCOMFORT
     Route: 048
  5. FLUOXETINE [Concomitant]
     Indication: DEPRESSION
     Route: 048
  6. HUMIRA [Suspect]
     Indication: ANKYLOSING SPONDYLITIS
     Dates: start: 20100912
  7. TRIPHAZAL [Concomitant]
     Indication: OVARIAN CYST
  8. IBUPROFEN [Concomitant]
     Indication: PAIN
     Route: 048

REACTIONS (1)
  - INJECTION SITE PAIN [None]
